FAERS Safety Report 10033987 (Version 1)
Quarter: 2014Q1

REPORT INFORMATION
  Report Type: Spontaneous
  Country: US (occurrence: None)
  Receive Date: 20140324
  Receipt Date: 20140324
  Transmission Date: 20141002
  Serious: Yes (Other)
  Sender: FDA-Public Use
  Company Number: None

PATIENT
  Age: 58 Year
  Sex: Female
  Weight: 158 kg

DRUGS (7)
  1. DIFICID [Suspect]
     Indication: CLOSTRIDIUM DIFFICILE INFECTION
     Dosage: 1 BID NG TUBE
     Dates: start: 20140310, end: 20140313
  2. TIGECYCLINE [Concomitant]
  3. AZTREONAM [Concomitant]
  4. INSULIN NPH [Concomitant]
  5. SILVER SULFADIAZINE [Concomitant]
  6. FLUTICASONE [Concomitant]
  7. NYSTATIN [Concomitant]

REACTIONS (1)
  - Blister [None]
